FAERS Safety Report 20780821 (Version 1)
Quarter: 2022Q2

REPORT INFORMATION
  Report Type: Spontaneous
  Country: ES (occurrence: ES)
  Receive Date: 20220504
  Receipt Date: 20220504
  Transmission Date: 20220721
  Serious: Yes (Other)
  Sender: FDA-Public Use
  Company Number: ES-SUN PHARMACEUTICAL INDUSTRIES LTD-2022RR-335396

PATIENT
  Age: 12 Year
  Sex: Male

DRUGS (10)
  1. MEROPENEM [Suspect]
     Active Substance: MEROPENEM
     Indication: Antibiotic therapy
     Dosage: UNK
     Route: 065
  2. AMOXICILLIN\CLAVULANIC ACID [Suspect]
     Active Substance: AMOXICILLIN\CLAVULANIC ACID
     Indication: COVID-19
     Dosage: UNK
     Route: 065
  3. CEFOTAXIME [Suspect]
     Active Substance: CEFOTAXIME SODIUM
     Indication: Antibiotic therapy
     Dosage: UNK
     Route: 065
  4. VANCOMYCIN HYDROCHLORIDE [Suspect]
     Active Substance: VANCOMYCIN HYDROCHLORIDE
     Indication: Antibiotic therapy
     Dosage: UNK
     Route: 065
  5. CLINDAMYCIN [Suspect]
     Active Substance: CLINDAMYCIN
     Indication: Antibiotic therapy
     Dosage: UNK
     Route: 065
  6. METHYLPREDNISOLONE [Suspect]
     Active Substance: METHYLPREDNISOLONE
     Indication: Multisystem inflammatory syndrome
     Dosage: 50 MILLIGRAM, BID, APROX 1.7 MG/KG/DAY
     Route: 065
  7. METHYLPREDNISOLONE [Suspect]
     Active Substance: METHYLPREDNISOLONE
     Dosage: 1 GRAM, PULSE
     Route: 065
  8. HUMAN IMMUNOGLOBULIN G [Concomitant]
     Active Substance: HUMAN IMMUNOGLOBULIN G
     Indication: Shock
     Dosage: UNK
     Route: 065
  9. NOREPINEPHRINE [Concomitant]
     Active Substance: NOREPINEPHRINE
     Indication: Shock
     Dosage: UNK
     Route: 065
  10. UNSPECIFIED INGREDIENT [Concomitant]
     Active Substance: UNSPECIFIED INGREDIENT
     Indication: Shock
     Dosage: UNK
     Route: 065

REACTIONS (3)
  - Condition aggravated [Unknown]
  - Off label use [Unknown]
  - Drug ineffective [Unknown]
